FAERS Safety Report 20497419 (Version 1)
Quarter: 2022Q1

REPORT INFORMATION
  Report Type: Spontaneous
  Country: CN (occurrence: CN)
  Receive Date: 20220221
  Receipt Date: 20220221
  Transmission Date: 20220423
  Serious: Yes (Other)
  Sender: FDA-Public Use
  Company Number: CN-BAXTER-2022BAX003595

PATIENT
  Age: 3 Year
  Sex: Female
  Weight: 13.5 kg

DRUGS (8)
  1. CYCLOPHOSPHAMIDE [Suspect]
     Active Substance: CYCLOPHOSPHAMIDE
     Indication: Burkitt^s lymphoma
     Dosage: CYCLOPHOSPHAMIDE FOR INJECTION (DISTRICT COLLECTION) 0.4 G + 0.9% SODIUM CHLORIDE INJECTION 250ML
     Route: 041
     Dates: start: 20220114
  2. SODIUM CHLORIDE [Suspect]
     Active Substance: SODIUM CHLORIDE
     Indication: Medication dilution
     Dosage: VINORELBINE TARTRATE FOR INJECTION 0.8 MG + 0.9% SODIUM CHLORIDE INJECTION 10ML
     Route: 042
     Dates: start: 20220114
  3. SODIUM CHLORIDE [Suspect]
     Active Substance: SODIUM CHLORIDE
     Dosage: CYCLOPHOSPHAMIDE 0.4 G + 0.9% SODIUM CHLORIDE INJECTION 250ML, IVGTT, QD
     Route: 041
     Dates: start: 20220114
  4. SODIUM CHLORIDE [Suspect]
     Active Substance: SODIUM CHLORIDE
     Dosage: DOXORUBICIN HYDROCHLORIDE FOR INJECTION 30 MG + 0.9% SODIUM CHLORIDE INJECTION 100ML
     Route: 041
     Dates: start: 20220122
  5. SODIUM CHLORIDE [Suspect]
     Active Substance: SODIUM CHLORIDE
     Dosage: VINORELBINE TARTRATE FOR INJECTION 0.8 MG + 0.9% SODIUM CHLORIDE INJECTION 10ML
     Route: 042
     Dates: start: 20220122
  6. VINORELBINE TARTRATE [Suspect]
     Active Substance: VINORELBINE TARTRATE
     Indication: Burkitt^s lymphoma
     Dosage: VINORELBINE TARTRATE FOR INJECTION 0.8 MG + 0.9% SODIUM CHLORIDE INJECTION 10ML
     Route: 041
     Dates: start: 20220114
  7. VINORELBINE TARTRATE [Suspect]
     Active Substance: VINORELBINE TARTRATE
     Dosage: VINORELBINE TARTRATE FOR INJECTION 0.8 MG + 0.9% SODIUM CHLORIDE INJECTION 10ML
     Route: 041
     Dates: start: 20220122
  8. DOXORUBICIN HYDROCHLORIDE [Suspect]
     Active Substance: DOXORUBICIN HYDROCHLORIDE
     Indication: Burkitt^s lymphoma
     Dosage: DOXORUBICIN HYDROCHLORIDE FOR INJECTION 30 MG + 0.9% SODIUM CHLORIDE INJECTION 100ML
     Route: 041
     Dates: start: 20220122

REACTIONS (1)
  - Myelosuppression [Recovering/Resolving]

NARRATIVE: CASE EVENT DATE: 20220128
